FAERS Safety Report 7044184-8 (Version None)
Quarter: 2010Q4

REPORT INFORMATION
  Report Type: 
  Country: None (occurrence: None)
  Receive Date: 20101013
  Receipt Date: 20100929
  Transmission Date: 20110411
  Serious: No
  Sender: FDA-Public Use
  Company Number: US-PFIZER INC-2010124683

PATIENT
  Sex: Male
  Weight: 72.562 kg

DRUGS (8)
  1. LYRICA [Suspect]
     Indication: PAIN
     Dosage: 75 MG, 1X/DAY
  2. LYRICA [Suspect]
     Dosage: 75 MG, 2X/DAY
  3. LYRICA [Suspect]
     Dosage: 1000, UNK
     Dates: start: 20100928
  4. LAMICTAL [Concomitant]
     Indication: PAIN
     Dosage: UNK
     Dates: start: 20000101, end: 20100901
  5. VICODIN [Concomitant]
     Indication: PAIN
     Dosage: UNK, AS NEEDED
  6. ALLOPURINOL [Concomitant]
     Dosage: UNK
  7. PROTONIX [Concomitant]
     Dosage: UNK
  8. ACETYLSALICYLIC ACID [Concomitant]
     Dosage: UNK

REACTIONS (2)
  - DRUG INEFFECTIVE [None]
  - FEELING DRUNK [None]
